FAERS Safety Report 21109230 (Version 2)
Quarter: 2022Q3

REPORT INFORMATION
  Report Type: Spontaneous
  Country: JP (occurrence: JP)
  Receive Date: 20220721
  Receipt Date: 20220823
  Transmission Date: 20221027
  Serious: Yes (Other)
  Sender: FDA-Public Use
  Company Number: JP-ALXN-A202208471

PATIENT
  Age: 42 Year
  Sex: Female
  Weight: 65 kg

DRUGS (13)
  1. SOLIRIS [Suspect]
     Active Substance: ECULIZUMAB
     Dosage: 1200 MG, Q2W
     Route: 042
     Dates: start: 20210415
  2. SOLIRIS [Suspect]
     Active Substance: ECULIZUMAB
     Indication: Myasthenia gravis
     Dosage: UNK
     Route: 042
     Dates: start: 20200727, end: 20201019
  3. SOLIRIS [Suspect]
     Active Substance: ECULIZUMAB
     Dosage: UNK
     Route: 042
     Dates: start: 20201221
  4. METHYLPREDNISOLONE [Concomitant]
     Active Substance: METHYLPREDNISOLONE
     Indication: Myasthenia gravis
     Dosage: 1000 MG, TID
     Route: 051
     Dates: start: 201006
  5. METHYLPREDNISOLONE [Concomitant]
     Active Substance: METHYLPREDNISOLONE
     Dosage: 1000 MG, TID
     Route: 051
     Dates: start: 20200429, end: 20200501
  6. METHYLPREDNISOLONE [Concomitant]
     Active Substance: METHYLPREDNISOLONE
     Dosage: 1000 MG, TID
     Route: 051
     Dates: start: 20200507, end: 20200509
  7. METHYLPREDNISOLONE [Concomitant]
     Active Substance: METHYLPREDNISOLONE
     Dosage: 1000 MG, TID
     Route: 051
     Dates: start: 20201205, end: 20201207
  8. METHYLPREDNISOLONE [Concomitant]
     Active Substance: METHYLPREDNISOLONE
     Dosage: 1000 MG, TID
     Route: 051
     Dates: start: 20201212, end: 20201213
  9. PREDONINE [Concomitant]
     Active Substance: PREDNISOLONE
     Dosage: 15 MG, QD
     Route: 048
     Dates: start: 202004
  10. PREDONINE [Concomitant]
     Active Substance: PREDNISOLONE
     Indication: Myasthenia gravis
     Dosage: 65 MG, QD
     Route: 048
     Dates: start: 201006
  11. PREDONINE [Concomitant]
     Active Substance: PREDNISOLONE
     Dosage: 5-30 MG, QD
     Route: 048
     Dates: start: 202004
  12. PREDONINE [Concomitant]
     Active Substance: PREDNISOLONE
     Dosage: UNK (GRADUALLY DECREASED)
     Route: 048
     Dates: end: 201304
  13. PROGRAF [Concomitant]
     Active Substance: TACROLIMUS
     Indication: Myasthenia gravis
     Dosage: 3 MG, QD
     Route: 048
     Dates: start: 201304

REACTIONS (1)
  - Myasthenia gravis [Recovered/Resolved]

NARRATIVE: CASE EVENT DATE: 20201127
